FAERS Safety Report 9741767 (Version 2)
Quarter: 2014Q1

REPORT INFORMATION
  Report Type: Spontaneous
  Country: US (occurrence: US)
  Receive Date: 20131210
  Receipt Date: 20140123
  Transmission Date: 20141002
  Serious: Yes (Other)
  Sender: FDA-Public Use
  Company Number: US-AMGEN-USASP2013085325

PATIENT
  Age: 67 Year
  Sex: Female
  Weight: 57.14 kg

DRUGS (17)
  1. PROLIA [Suspect]
     Indication: OSTEOPOROSIS POSTMENOPAUSAL
     Dosage: 60 MG, Q6MO
     Route: 058
     Dates: start: 20110701
  2. MOBIC [Concomitant]
     Indication: OSTEOARTHRITIS
  3. ASPIRIN [Concomitant]
     Dosage: 81 MG, QD
  4. B COMPLEX                          /00212701/ [Concomitant]
  5. B6 [Concomitant]
     Dosage: 100 MG, UNK
  6. CALCIUM 600 + D [Concomitant]
     Dosage: UNK UNK, QD
  7. CHROMIUM PICOLINATE [Concomitant]
     Dosage: 500 MUG, BID
  8. FOLIC ACID [Concomitant]
     Dosage: 400 MUG, QD
  9. VITAMIN E-400 [Concomitant]
     Dosage: UNK UNK, QD
  10. L-LYSINE                           /00919901/ [Concomitant]
     Dosage: 500 MG, QD
  11. LUTEIN                             /01638501/ [Concomitant]
     Dosage: 20 MG, QD
  12. MAGNESIUM OXIDE [Concomitant]
     Dosage: 250 MG, QD
  13. MELOXICAM [Concomitant]
     Dosage: 15 MG, QD
  14. OSTEO BI-FLEX                      /01431201/ [Concomitant]
     Dosage: UNK, BID
  15. POTASSIUM [Concomitant]
     Dosage: 99 MG, AS NECESSARY
  16. VITAMIN D                          /00107901/ [Concomitant]
     Dosage: UNK UNK, QD
  17. ZINC [Concomitant]
     Dosage: 50 MG, UNK

REACTIONS (8)
  - Fall [Unknown]
  - Walking aid user [Unknown]
  - Foot fracture [Recovering/Resolving]
  - Osteoarthritis [Unknown]
  - Venous insufficiency [Unknown]
  - Skin turgor decreased [Unknown]
  - Hyporeflexia [Unknown]
  - Arthralgia [Unknown]
